FAERS Safety Report 7242154-8 (Version None)
Quarter: 2011Q1

REPORT INFORMATION
  Report Type: 
  Country: None (occurrence: None)
  Receive Date: 20110124
  Receipt Date: 20110113
  Transmission Date: 20110831
  Serious: No
  Sender: FDA-Public Use
  Company Number: PHHY2010US86076

PATIENT
  Sex: Male
  Weight: 96.599 kg

DRUGS (8)
  1. VFEND [Concomitant]
  2. EXJADE [Suspect]
     Dosage: 4 DF, QD
     Route: 048
  3. CALCIUM W/VITAMIN D NOS [Concomitant]
     Dosage: UNK
     Route: 048
  4. METOPROLOL [Concomitant]
     Indication: BLOOD PRESSURE
     Dosage: 25 MG, TID
     Route: 048
  5. LEVAQUIN [Concomitant]
  6. VORICONAZOLE [Concomitant]
     Indication: ANTIFUNGAL PROPHYLAXIS
     Dosage: 200 MG, BID
     Route: 048
  7. ACYCLOVIR [Concomitant]
     Indication: HERPES ZOSTER
     Dosage: 400 MG, BID
     Route: 048
  8. MULTI-VITAMINS [Concomitant]
     Dosage: UNK
     Route: 048

REACTIONS (3)
  - MALAISE [None]
  - MYALGIA [None]
  - RASH [None]
